FAERS Safety Report 9871400 (Version 1)
Quarter: 2014Q1

REPORT INFORMATION
  Report Type: Report from Study
  Country: MX (occurrence: MX)
  Receive Date: 20140205
  Receipt Date: 20140205
  Transmission Date: 20141002
  Serious: Yes (Hospitalization, Other)
  Sender: FDA-Public Use
  Company Number: PHHY2014MX014112

PATIENT
  Age: 77 Year
  Sex: Male
  Weight: 87 kg

DRUGS (5)
  1. EXELON PATCH [Suspect]
     Indication: DEMENTIA ALZHEIMER^S TYPE
     Dosage: 9.5 MG, DAILY (PATCH 10 CM2)
     Route: 062
  2. GALVUS MET [Suspect]
     Indication: HYPERTENSION
     Dosage: UNK UKN, DAILY
     Route: 048
  3. GALVUS MET [Suspect]
     Indication: OFF LABEL USE
  4. TEMERIT [Concomitant]
     Dosage: UNK UKN, DAILY
     Route: 048
  5. HALDOL [Concomitant]
     Indication: INSOMNIA
     Dosage: UNK UKN, DAILY
     Route: 048

REACTIONS (4)
  - Pneumonia [Recovered/Resolved]
  - Dyspnoea [Recovered/Resolved]
  - Bronchitis [Recovered/Resolved]
  - Condition aggravated [Recovered/Resolved]
